FAERS Safety Report 5003078-X (Version None)
Quarter: 2006Q2

REPORT INFORMATION
  Report Type: 
  Country: None (occurrence: None)
  Receive Date: 20060516
  Receipt Date: 20060418
  Transmission Date: 20061013
  Serious: Yes (Death, Hospitalization)
  Sender: FDA-Public Use
  Company Number: ES-ROCHE-444502

PATIENT
  Age: 55 Year
  Sex: Female
  Weight: 60 kg

DRUGS (5)
  1. CAPECITABINE [Suspect]
     Route: 048
     Dates: start: 20050331, end: 20050614
  2. AVASTIN [Suspect]
     Dosage: GIVEN ON DAY ONE OF EACH TWO WEEK CYCLE.
     Route: 042
     Dates: start: 20050331, end: 20050621
  3. OXALIPLATIN [Suspect]
     Route: 042
     Dates: start: 20050531, end: 20050531
  4. IRINOTECAN [Concomitant]
     Route: 042
     Dates: start: 20050711, end: 20050727
  5. FLUOROURACIL [Concomitant]
     Route: 042
     Dates: start: 20050711, end: 20050728

REACTIONS (7)
  - DRUG TOXICITY [None]
  - ENTERITIS [None]
  - GASTRITIS [None]
  - GENERAL PHYSICAL HEALTH DETERIORATION [None]
  - LIVER DISORDER [None]
  - PNEUMONIA [None]
  - SEPSIS [None]
